FAERS Safety Report 9329512 (Version 1)
Quarter: 2013Q2

REPORT INFORMATION
  Report Type: Spontaneous
  Country: US (occurrence: US)
  Receive Date: 20130604
  Receipt Date: 20130604
  Transmission Date: 20140414
  Serious: Yes (Other)
  Sender: FDA-Public Use
  Company Number: US-SANOFI-AVENTIS-2012SA087496

PATIENT
  Age: 54 Year
  Sex: Female

DRUGS (5)
  1. LANTUS [Suspect]
     Indication: TYPE 2 DIABETES MELLITUS
     Route: 058
  2. LANTUS [Suspect]
     Indication: TYPE 2 DIABETES MELLITUS
     Dosage: DOSE:40 UNIT(S)
     Route: 058
     Dates: start: 20121127
  3. NPH INSULIN [Concomitant]
  4. HUMALOG [Concomitant]
  5. INSULIN, REGULAR [Concomitant]

REACTIONS (5)
  - Hypoglycaemia [Unknown]
  - Feeling abnormal [Unknown]
  - Heart rate increased [Unknown]
  - Hyperhidrosis [Unknown]
  - Blood glucose decreased [Unknown]
